FAERS Safety Report 6268492-3 (Version None)
Quarter: 2009Q3

REPORT INFORMATION
  Report Type: 
  Country: None (occurrence: None)
  Receive Date: 20090713
  Receipt Date: 20090713
  Transmission Date: 20100115
  Serious: Yes (Hospitalization)
  Sender: FDA-Public Use
  Company Number: None

PATIENT
  Age: 61 Year
  Sex: Male
  Weight: 88.4514 kg

DRUGS (1)
  1. NIASPAN [Suspect]
     Indication: HIGH DENSITY LIPOPROTEIN DECREASED
     Dosage: ONE TABLET DAILY PO
     Route: 048
     Dates: start: 20090604, end: 20090710

REACTIONS (4)
  - DIZZINESS [None]
  - DYSPNOEA [None]
  - HEADACHE [None]
  - PARAESTHESIA [None]
